FAERS Safety Report 11038562 (Version 1)
Quarter: 2015Q2

REPORT INFORMATION
  Report Type: Spontaneous
  Country: US (occurrence: None)
  Receive Date: 20150415
  Receipt Date: 20150415
  Transmission Date: 20150821
  Serious: No
  Sender: FDA-Public Use
  Company Number: None

PATIENT
  Age: 61 Year
  Sex: Female
  Weight: 74.39 kg

DRUGS (1)
  1. CELECOXIB 200MG TEVA [Suspect]
     Active Substance: CELECOXIB
     Indication: OSTEOARTHRITIS
     Dosage: ONE CAPSULE DAILY ORAL
     Route: 048
     Dates: start: 20141222, end: 20150323

REACTIONS (3)
  - Drug ineffective [None]
  - Pain [None]
  - Arthropathy [None]

NARRATIVE: CASE EVENT DATE: 20141222
